FAERS Safety Report 4682078-3 (Version None)
Quarter: 2005Q2

REPORT INFORMATION
  Report Type: 
  Country: None (occurrence: None)
  Receive Date: 20050602
  Receipt Date: 20050125
  Transmission Date: 20051028
  Serious: Yes (Other)
  Sender: FDA-Public Use
  Company Number: 2005US000012

PATIENT
  Age: 56 Year
  Sex: Male

DRUGS (1)
  1. PROGRAF [Suspect]

REACTIONS (3)
  - CONVULSION [None]
  - IRRITABILITY [None]
  - NERVOUSNESS [None]
